FAERS Safety Report 7203929-4 (Version None)
Quarter: 2010Q4

REPORT INFORMATION
  Report Type: 
  Country: None (occurrence: None)
  Receive Date: 20101230
  Receipt Date: 20101227
  Transmission Date: 20110411
  Serious: Yes (Other)
  Sender: FDA-Public Use
  Company Number: US-PFIZER INC-2010179553

PATIENT
  Sex: Male
  Weight: 86.168 kg

DRUGS (5)
  1. TOVIAZ [Suspect]
     Indication: HYPERTONIC BLADDER
     Dosage: 8 MG, 1X/DAY
     Dates: start: 20100101
  2. TIMOLOL [Concomitant]
     Indication: RETINAL DETACHMENT
     Dosage: UNK
  3. BRIMONIDINE [Concomitant]
     Indication: RETINAL DETACHMENT
     Dosage: UNK
  4. NAPHAZOLINE [Concomitant]
     Indication: RETINAL DETACHMENT
     Dosage: UNK
  5. TRAVATAN [Concomitant]
     Indication: RETINAL DETACHMENT
     Dosage: UNK

REACTIONS (1)
  - VISION BLURRED [None]
